FAERS Safety Report 14371400 (Version 2)
Quarter: 2018Q1

REPORT INFORMATION
  Report Type: Report from Study
  Country: BR (occurrence: BR)
  Receive Date: 20180110
  Receipt Date: 20180112
  Transmission Date: 20180509
  Serious: Yes (Other)
  Sender: FDA-Public Use
  Company Number: PHHY2017BR193254

PATIENT
  Age: 88 Year
  Sex: Female
  Weight: 70 kg

DRUGS (2)
  1. ACLASTA [Suspect]
     Active Substance: ZOLEDRONIC ACID
     Dosage: 5 MG, Q12MO (IN TREATMENT FOR 4 YAERS)
     Route: 042
     Dates: start: 20160822
  2. ACLASTA [Suspect]
     Active Substance: ZOLEDRONIC ACID
     Indication: OSTEOPOROSIS
     Dosage: 5 MG, Q12MO
     Route: 042

REACTIONS (9)
  - Fall [Unknown]
  - Intestinal mass [Recovered/Resolved]
  - Osteoporosis [Unknown]
  - Weight decreased [Unknown]
  - Femur fracture [Recovering/Resolving]
  - Pain in extremity [Unknown]
  - Condition aggravated [Unknown]
  - Body height decreased [Unknown]
  - Upper limb fracture [Recovering/Resolving]

NARRATIVE: CASE EVENT DATE: 201708
